FAERS Safety Report 23719637 (Version 1)
Quarter: 2024Q2

REPORT INFORMATION
  Report Type: Spontaneous
  Country: CH (occurrence: CH)
  Receive Date: 20240408
  Receipt Date: 20240408
  Transmission Date: 20240717
  Serious: Yes (Other)
  Sender: FDA-Public Use
  Company Number: CH-009507513-2404CHE004989

PATIENT

DRUGS (11)
  1. IMIPENEM AND CILASTATIN [Suspect]
     Active Substance: CILASTATIN SODIUM\IMIPENEM
     Indication: Cholangitis
     Dosage: UNK
     Dates: start: 20231018, end: 20231024
  2. IMIPENEM AND CILASTATIN [Suspect]
     Active Substance: CILASTATIN SODIUM\IMIPENEM
     Dosage: UNK
     Dates: start: 20231026, end: 20231027
  3. IMIPENEM AND CILASTATIN [Suspect]
     Active Substance: CILASTATIN SODIUM\IMIPENEM
     Dosage: UNK
     Dates: start: 20231218, end: 20231221
  4. DAPTOMYCIN [Suspect]
     Active Substance: DAPTOMYCIN
     Indication: Cholangitis
     Dosage: UNK
     Dates: start: 20231027, end: 20231213
  5. DAPTOMYCIN [Suspect]
     Active Substance: DAPTOMYCIN
     Dosage: UNK
     Dates: start: 20231217, end: 20231218
  6. CEFTRIAXONE [Suspect]
     Active Substance: CEFTRIAXONE\CEFTRIAXONE SODIUM
     Indication: Cholangitis
     Dosage: UNK
     Dates: start: 20231024, end: 20231026
  7. CEFTRIAXONE [Suspect]
     Active Substance: CEFTRIAXONE\CEFTRIAXONE SODIUM
     Dosage: UNK
     Dates: start: 20230111, end: 20230116
  8. METRONIDAZOLE [Suspect]
     Active Substance: METRONIDAZOLE
     Indication: Cholangitis
     Dosage: UNK
     Dates: start: 20231024, end: 20231026
  9. MEROPENEM [Suspect]
     Active Substance: MEROPENEM
     Indication: Cholangitis
     Dosage: UNK
     Dates: start: 20231027, end: 20231213
  10. MEROPENEM [Suspect]
     Active Substance: MEROPENEM
     Dosage: UNK
     Dates: start: 20231217, end: 20231218
  11. MEROPENEM [Suspect]
     Active Substance: MEROPENEM
     Dosage: UNK, OUTPATIENT PARENTERAL ANTIBIOTIC THERAPY (OPAT)
     Dates: start: 20231222, end: 20240111

REACTIONS (2)
  - Neutropenia [Unknown]
  - Product use in unapproved indication [Unknown]

NARRATIVE: CASE EVENT DATE: 20231027
